FAERS Safety Report 5649289-1 (Version None)
Quarter: 2008Q1

REPORT INFORMATION
  Report Type: 
  Country: None (occurrence: None)
  Receive Date: 20080303
  Receipt Date: 20080303
  Transmission Date: 20080703
  Serious: Yes (Other)
  Sender: FDA-Public Use
  Company Number: None

PATIENT
  Age: 16 Year
  Sex: Female
  Weight: 54.4316 kg

DRUGS (1)
  1. CEFUROXIME [Suspect]
     Indication: INFECTIOUS MONONUCLEOSIS
     Dosage: 1  TWICE A DAY  PO  (3 TABLETS WERE TAKEN ONLY)
     Route: 048
     Dates: start: 20080228, end: 20080229

REACTIONS (3)
  - HYPOAESTHESIA ORAL [None]
  - LIP SWELLING [None]
  - OEDEMA MOUTH [None]
